FAERS Safety Report 23749953 (Version 2)
Quarter: 2024Q2

REPORT INFORMATION
  Report Type: Spontaneous
  Country: HU (occurrence: HU)
  Receive Date: 20240417
  Receipt Date: 20240517
  Transmission Date: 20240716
  Serious: Yes (Hospitalization, Other)
  Sender: FDA-Public Use
  Company Number: None

PATIENT
  Age: 2 Year
  Sex: Male

DRUGS (18)
  1. PREDNISOLONE [Suspect]
     Active Substance: PREDNISOLONE
     Indication: Autoimmune haemolytic anaemia
     Dosage: 2 MILLIGRAM/KILOGRAM
     Route: 065
     Dates: start: 20220119
  2. PREDNISOLONE [Suspect]
     Active Substance: PREDNISOLONE
     Indication: Immunosuppressant drug therapy
     Dosage: UNK (GRADUAL TAPERING)
     Route: 065
     Dates: start: 2022
  3. PREDNISOLONE [Suspect]
     Active Substance: PREDNISOLONE
     Dosage: UNK
     Route: 065
     Dates: start: 2022
  4. PREDNISOLONE [Suspect]
     Active Substance: PREDNISOLONE
     Dosage: 2 MILLIGRAM/KILOGRAM (LOW DOSE)
     Route: 065
     Dates: start: 2022
  5. PREDNISOLONE [Suspect]
     Active Substance: PREDNISOLONE
     Dosage: UNK (SLOWER TAPERING)
     Route: 065
     Dates: start: 2022
  6. PREDNISOLONE [Suspect]
     Active Substance: PREDNISOLONE
     Dosage: 0.1 MILLIGRAM/KILOGRAM (LOW DOSE; AT FOLLOW-UP)
     Route: 065
     Dates: start: 2022
  7. PREDNISOLONE [Suspect]
     Active Substance: PREDNISOLONE
     Dosage: 0.1 MILLIGRAM/KILOGRAM (RESTARTED WITH SLOW TAPERING)
     Route: 065
  8. AZATHIOPRINE [Suspect]
     Active Substance: AZATHIOPRINE
     Indication: Autoimmune haemolytic anaemia
     Dosage: 2.5 MILLIGRAM/KILOGRAM
     Route: 065
     Dates: start: 2022
  9. AZATHIOPRINE [Suspect]
     Active Substance: AZATHIOPRINE
     Indication: Hepatic cirrhosis
     Dosage: 2.5 MILLIGRAM/KILOGRAM (RESTARTED)
     Route: 065
     Dates: start: 2022, end: 202203
  10. AZATHIOPRINE [Suspect]
     Active Substance: AZATHIOPRINE
     Indication: Hepatitis
  11. AZATHIOPRINE [Suspect]
     Active Substance: AZATHIOPRINE
     Indication: Immunosuppressant drug therapy
  12. RITUXIMAB [Suspect]
     Active Substance: RITUXIMAB
     Indication: Autoimmune haemolytic anaemia
     Dosage: 375 MILLIGRAM/SQ. METER, ONCE A WEEK (REPEATED FOR SIX TIMES IN TOTAL)
     Route: 065
     Dates: start: 20220119, end: 2022
  13. RITUXIMAB [Suspect]
     Active Substance: RITUXIMAB
     Indication: Hepatic cirrhosis
  14. RITUXIMAB [Suspect]
     Active Substance: RITUXIMAB
     Indication: Hepatitis
  15. RITUXIMAB [Suspect]
     Active Substance: RITUXIMAB
     Indication: Immunosuppressant drug therapy
  16. HUMAN IMMUNOGLOBULIN G [Suspect]
     Active Substance: HUMAN IMMUNOGLOBULIN G
     Indication: Autoimmune haemolytic anaemia
     Dosage: UNK
     Route: 042
     Dates: start: 20220119
  17. HUMAN IMMUNOGLOBULIN G [Suspect]
     Active Substance: HUMAN IMMUNOGLOBULIN G
     Indication: Hypogammaglobulinaemia
     Dosage: UNK (RECEIVED SEVERAL TIMES)
     Route: 042
     Dates: start: 2022
  18. VITAMIN K [Concomitant]
     Active Substance: PHYTONADIONE
     Indication: Haemostasis
     Dosage: UNK
     Route: 042
     Dates: start: 2022

REACTIONS (9)
  - Ascites [Recovered/Resolved]
  - Jaundice [Unknown]
  - Hepatomegaly [Unknown]
  - Acute hepatic failure [Unknown]
  - Myelosuppression [Recovered/Resolved]
  - Influenza [Unknown]
  - Respiratory tract infection [Unknown]
  - Oral candidiasis [Unknown]
  - Device related infection [Unknown]

NARRATIVE: CASE EVENT DATE: 20220101
